FAERS Safety Report 10269555 (Version 1)
Quarter: 2014Q3

REPORT INFORMATION
  Report Type: Spontaneous
  Country: US (occurrence: US)
  Receive Date: 20140701
  Receipt Date: 20140701
  Transmission Date: 20150326
  Serious: Yes (Other)
  Sender: FDA-Public Use
  Company Number: US-ASTRAZENECA-2014SE46319

PATIENT
  Age: 44 Year
  Sex: Male
  Weight: 99.8 kg

DRUGS (8)
  1. LOSARTAN [Concomitant]
     Active Substance: LOSARTAN
  2. COUMADIN [Concomitant]
     Active Substance: WARFARIN SODIUM
  3. TOPROL XL [Suspect]
     Active Substance: METOPROLOL SUCCINATE
     Indication: CARDIAC FAILURE
     Route: 048
  4. LIPITOR [Concomitant]
     Active Substance: ATORVASTATIN CALCIUM
  5. TOPROL XL [Suspect]
     Active Substance: METOPROLOL SUCCINATE
     Indication: HYPERTENSION
     Route: 048
  6. TOPROL XL [Suspect]
     Active Substance: METOPROLOL SUCCINATE
     Indication: ANGINA PECTORIS
     Route: 048
  7. WARFARIN [Suspect]
     Active Substance: WARFARIN
  8. NORPACE [Concomitant]
     Active Substance: DISOPYRAMIDE PHOSPHATE

REACTIONS (9)
  - Blood disorder [Not Recovered/Not Resolved]
  - Drug effect decreased [Unknown]
  - Blood pressure increased [Unknown]
  - Adverse event [Unknown]
  - Cardiomyopathy [Unknown]
  - Movement disorder [Unknown]
  - International normalised ratio abnormal [Unknown]
  - Atrial fibrillation [Unknown]
  - Drug dose omission [Unknown]
